FAERS Safety Report 22178218 (Version 2)
Quarter: 2023Q2

REPORT INFORMATION
  Report Type: Spontaneous
  Country: IT (occurrence: IT)
  Receive Date: 20230405
  Receipt Date: 20230421
  Transmission Date: 20230721
  Serious: Yes (Other)
  Sender: FDA-Public Use
  Company Number: IT-TEVA-2023-IT-2873418

PATIENT
  Age: 54 Year
  Sex: Female

DRUGS (4)
  1. DOXORUBICIN [Suspect]
     Active Substance: DOXORUBICIN
     Indication: Uterine leiomyosarcoma
     Dosage: 75 MG/M2, EVERY 3 WEEKS
     Route: 042
     Dates: start: 201707, end: 201711
  2. DACARBAZINE [Suspect]
     Active Substance: DACARBAZINE
     Indication: Uterine leiomyosarcoma
     Dosage: 750 MG/M2 PER CYCLE, EVERY 3 WEEKS
     Route: 042
     Dates: start: 201707, end: 201711
  3. TRABECTEDIN [Suspect]
     Active Substance: TRABECTEDIN
     Indication: Uterine leiomyosarcoma
     Dosage: 1.5 MG/M2, EVERY 3 WEEKS
     Route: 065
     Dates: start: 201901, end: 202012
  4. TRABECTEDIN [Suspect]
     Active Substance: TRABECTEDIN
     Dosage: 1.2 MG/M2
     Route: 065

REACTIONS (9)
  - Neutropenia [Unknown]
  - Thrombocytopenia [Unknown]
  - Hepatotoxicity [Recovered/Resolved]
  - Anaemia [Unknown]
  - Blood creatinine increased [Unknown]
  - Blood bilirubin increased [Recovered/Resolved]
  - Alanine aminotransferase increased [Recovered/Resolved]
  - Aspartate aminotransferase increased [Recovered/Resolved]
  - Blood alkaline phosphatase increased [Recovered/Resolved]
